FAERS Safety Report 22384387 (Version 11)
Quarter: 2025Q3

REPORT INFORMATION
  Report Type: Spontaneous
  Country: EU (occurrence: EU)
  Receive Date: 20230530
  Receipt Date: 20250924
  Transmission Date: 20251020
  Serious: Yes (Other)
  Sender: MYLAN
  Company Number: EU-AUROBINDO-AUR-APL-2023-036032

PATIENT
  Age: 62 Year
  Sex: Female
  Weight: 90 kg

DRUGS (43)
  1. METFORMIN [Suspect]
     Active Substance: METFORMIN HYDROCHLORIDE
     Indication: Diabetes mellitus
     Dosage: 1.05 MILLIGRAM, QD
  2. METFORMIN [Suspect]
     Active Substance: METFORMIN HYDROCHLORIDE
     Dosage: 2000 MILLIGRAM, QD
     Dates: start: 2010
  3. METFORMIN [Suspect]
     Active Substance: METFORMIN HYDROCHLORIDE
     Dosage: 1000 MILLIGRAM, QD (USED DOSAGE OF 1-0-1-0)
     Dates: start: 2010
  4. PRAMIPEXOLE [Suspect]
     Active Substance: PRAMIPEXOLE
     Indication: Tremor
     Dosage: 1.05 MILLIGRAM, ONCE A DAY (1-0-0-0)
  5. PRAMIPEXOLE [Suspect]
     Active Substance: PRAMIPEXOLE
     Indication: Parkinsonism
  6. GABAPENTIN [Concomitant]
     Active Substance: GABAPENTIN
     Indication: Arthralgia
     Dosage: 900 MG, QD (300 MILLIGRAM, TID (1-1-1-0))
     Dates: start: 2019
  7. GABAPENTIN [Concomitant]
     Active Substance: GABAPENTIN
     Indication: Personality disorder
     Dosage: 300 MILLIGRAM, QD (DAILY)
     Dates: start: 2019
  8. QUETIAPINE [Concomitant]
     Active Substance: QUETIAPINE
     Indication: Personality disorder
     Dosage: 400 MILLIGRAM, QD (0-0-1-0)
  9. QUETIAPINE [Concomitant]
     Active Substance: QUETIAPINE
     Dosage: 0.5 MILLIGRAM, ONCE A DAY
  10. ALPRAZOLAM [Concomitant]
     Active Substance: ALPRAZOLAM
     Indication: Personality disorder
     Dosage: 0.5 MILLIGRAM, QD (0-0-1-0)
  11. MANIDIPINE [Concomitant]
     Active Substance: MANIDIPINE
     Indication: Hypertension
     Dosage: 10 MILLIGRAM, QD (0-0-2-0)
     Dates: start: 2014
  12. MANIDIPINE [Concomitant]
     Active Substance: MANIDIPINE
     Dosage: 20 MILLIGRAM, QD (DAILY)
     Dates: start: 2014
  13. FUROSEMIDE [Concomitant]
     Active Substance: FUROSEMIDE
     Indication: Hypertension
  14. FUROSEMIDE [Concomitant]
     Active Substance: FUROSEMIDE
     Dosage: 40 MILLIGRAM, QD (DAILY)
     Dates: start: 2014
  15. FUROSEMIDE [Concomitant]
     Active Substance: FUROSEMIDE
     Dosage: 1.5 MILLIGRAM, QD (1-0.5-0-0)
     Dates: start: 2014
  16. LORMETAZEPAM [Concomitant]
     Active Substance: LORMETAZEPAM
     Indication: Personality disorder
     Dosage: 2 MILLIGRAM, QD (PRESCRIBED REGIMEN USED: 0-0-0-1)
  17. KETAZOLAM [Concomitant]
     Active Substance: KETAZOLAM
     Indication: Hallucination
     Dosage: 15 MILLIGRAM, QD, (0-0-0-1)
     Dates: start: 2016
  18. PIMOZIDE [Concomitant]
     Active Substance: PIMOZIDE
     Indication: Personality disorder
     Dosage: 1 MILLIGRAM, QD, (0-0-1-0)
  19. VALSARTAN [Concomitant]
     Active Substance: VALSARTAN
     Indication: Hypertension
     Dosage: 320 MILLIGRAM, ONCE A DAY (1-0-0-0)
     Dates: start: 2014
  20. VALSARTAN [Concomitant]
     Active Substance: VALSARTAN
     Indication: Hypertension
     Dosage: 30 MILLIGRAM (1-0-0-0), QD
  21. CLOPIDOGREL [Concomitant]
     Active Substance: CLOPIDOGREL BISULFATE
     Indication: Cerebrovascular accident
     Dosage: 75 MG DOSAGE PRESCRIBED, USED: 0-1-0-0-0
     Dates: start: 2018
  22. CLOPIDOGREL [Concomitant]
     Active Substance: CLOPIDOGREL BISULFATE
     Indication: Prophylaxis
  23. CLOPIDOGREL [Concomitant]
     Active Substance: CLOPIDOGREL BISULFATE
     Indication: Cerebrovascular accident prophylaxis
  24. EMPAGLIFLOZIN\METFORMIN HYDROCHLORIDE [Concomitant]
     Active Substance: EMPAGLIFLOZIN\METFORMIN HYDROCHLORIDE
     Indication: Diabetes mellitus
     Dosage: 5 MG, QD (1000 MG/5 MG (1-0-1-0), TWO TIMES A DAY)
  25. ALBUTEROL [Concomitant]
     Active Substance: ALBUTEROL
     Indication: Chronic obstructive pulmonary disease
  26. LIRAGLUTIDE [Concomitant]
     Active Substance: LIRAGLUTIDE
     Indication: Diabetes mellitus
     Dosage: 1 DF, QW (6 MG/ML PRESCRIBED REGIMEN, USED: 1 QW)
  27. LIRAGLUTIDE [Concomitant]
     Active Substance: LIRAGLUTIDE
     Indication: Hypertension
     Dosage: 1 DF, QW (6 MG/ML PRESCRIBED REGIMEN, USED: 1 QW)
     Dates: start: 2010
  28. GLYCOPYRRONIUM\INDACATEROL [Concomitant]
     Active Substance: GLYCOPYRRONIUM\INDACATEROL
     Indication: Chronic obstructive pulmonary disease
     Dosage: 43 MCG, QD (85 MCG/43 MCG (1 UNIT/24H))
     Dates: start: 2018
  29. CALCIFEDIOL [Concomitant]
     Active Substance: CALCIFEDIOL
     Indication: Vitamin D deficiency
  30. ATORVASTATIN [Concomitant]
     Active Substance: ATORVASTATIN
     Indication: Hypercholesterolaemia
     Dosage: 40 MILLIGRAM,QD, DOSAGE PRESCRIBED, USED: 0-0-1-0
     Dates: start: 2015
  31. TRAMADOL [Concomitant]
     Active Substance: TRAMADOL
     Indication: Arthralgia
     Dosage: 3 DF, QD (100 MG/ML, USED: ON-DEMAND)
     Dates: start: 2019
  32. TRAMADOL [Concomitant]
     Active Substance: TRAMADOL
  33. AMISULPRIDE [Concomitant]
     Active Substance: AMISULPRIDE
     Indication: Personality disorder
     Dosage: 0.5 DOSAGE FORM, QD (100 MILLIGRAM (0-0-0-0-0.5))
  34. AMISULPRIDE [Concomitant]
     Active Substance: AMISULPRIDE
     Dosage: 50 MILLIGRAM, ONCE A DAY  (0-0-0-0.5)
  35. PANTOPRAZOLE [Concomitant]
     Active Substance: PANTOPRAZOLE
     Indication: Gastrooesophageal reflux disease
     Dosage: 40 MILLIGRAM, QD,DOSAGE PRESCRIBED, USED: 1-0-0-0
     Dates: start: 2016
  36. ACETAMINOPHEN\TRAMADOL [Concomitant]
     Active Substance: ACETAMINOPHEN\TRAMADOL
     Indication: Arthralgia
     Dosage: 650 MILLIGRAM, QD (1-1-1-0)
     Dates: start: 2019
  37. ACETAMINOPHEN\TRAMADOL [Concomitant]
     Active Substance: ACETAMINOPHEN\TRAMADOL
     Dosage: 0.3 MILLIGRAM, ONCE A DAY (1-1-1-0 )
  38. VORTIOXETINE [Concomitant]
     Active Substance: VORTIOXETINE
     Indication: Personality disorder
     Dosage: 15 MILLIGRAM, ONCE A DAY (1-0-0-0 )
  39. ACETAMINOPHEN [Concomitant]
     Active Substance: ACETAMINOPHEN
     Indication: Arthralgia
     Dosage: 650 MG, TID, PRESCRIBED: 1-1-1-0; USED: 1-1-1-0
     Dates: start: 2019
  40. EMPAGLIFLOZIN [Concomitant]
     Active Substance: EMPAGLIFLOZIN
     Indication: Hypertension
     Dosage: 5 MILLIGRAM, QD
  41. GLYCOPYRROLATE [Concomitant]
     Active Substance: GLYCOPYRROLATE
     Indication: Chronic obstructive pulmonary disease
     Dosage: 43 MCG PRESCRIBED: 1 EVERY 24H; USED: 1 EVERY 24H
  42. INDACATEROL [Concomitant]
     Active Substance: INDACATEROL
     Indication: Chronic obstructive pulmonary disease
     Dosage: 85 MCG, QD (AT A DOSAGE OF 1 EVERY 24 HOURS)
     Dates: start: 2016
  43. MANIDIPINE HYDROCHLORIDE [Concomitant]
     Active Substance: MANIDIPINE HYDROCHLORIDE
     Indication: Hypertension

REACTIONS (9)
  - Hallucination [Recovered/Resolved]
  - Parkinsonism [Recovered/Resolved]
  - Hypotension [Recovered/Resolved]
  - Hypoglycaemia [Recovered/Resolved]
  - Somnolence [Recovered/Resolved]
  - Tachycardia [Recovered/Resolved]
  - Hyperhidrosis [Recovered/Resolved]
  - Drug interaction [Unknown]
  - Off label use [Unknown]
